FAERS Safety Report 9321721 (Version 1)
Quarter: 2013Q2

REPORT INFORMATION
  Report Type: Spontaneous
  Country: AR (occurrence: None)
  Receive Date: 20130529
  Receipt Date: 20130529
  Transmission Date: 20140414
  Serious: Yes (Death)
  Sender: FDA-Public Use
  Company Number: ENTC2013-0197

PATIENT
  Age: 80 Year
  Sex: Male

DRUGS (1)
  1. STALEVO (LEVODOPA, CARBIDOPA, ENTACAPONE) [Suspect]
     Dosage: 100 (UNIT NOT SPECIFIED)?STOPPED

REACTIONS (1)
  - Prostate cancer [None]
